FAERS Safety Report 11621658 (Version 2)
Quarter: 2015Q4

REPORT INFORMATION
  Report Type: Spontaneous
  Country: ES (occurrence: ES)
  Receive Date: 20151013
  Receipt Date: 20151210
  Transmission Date: 20160304
  Serious: Yes (Other)
  Sender: FDA-Public Use
  Company Number: ES-AMGEN-ESPSP2015106234

PATIENT
  Age: 64 Year
  Sex: Female

DRUGS (6)
  1. SECALIP [Concomitant]
     Active Substance: FENOFIBRATE
     Indication: BLOOD CHOLESTEROL
     Dosage: 1 DF, DAILY
  2. ENBREL [Suspect]
     Active Substance: ETANERCEPT
     Indication: RHEUMATOID ARTHRITIS
     Dosage: 50 MG, ONCE WEEKLY
     Route: 058
     Dates: start: 20150708
  3. METFORMIN [Concomitant]
     Active Substance: METFORMIN HYDROCHLORIDE
     Dosage: 850 MG, DAILY
  4. ENBREL [Suspect]
     Active Substance: ETANERCEPT
     Dosage: 50 MG, ONCE WEEKLY
     Route: 058
  5. METFORMIN [Concomitant]
     Active Substance: METFORMIN HYDROCHLORIDE
     Indication: BLOOD GLUCOSE ABNORMAL
     Dosage: 850 MG, DAILY
  6. CONDROSULF [Concomitant]
     Active Substance: CHONDROITIN SULFATE (CHICKEN)
     Indication: RHEUMATOID ARTHRITIS
     Dosage: 2 DF, DAILY

REACTIONS (5)
  - Fall [Recovered/Resolved]
  - Injection site pain [Recovered/Resolved]
  - Wrist fracture [Recovered/Resolved]
  - Headache [Not Recovered/Not Resolved]
  - Injection site discomfort [Recovered/Resolved]

NARRATIVE: CASE EVENT DATE: 2015
